FAERS Safety Report 10393655 (Version 1)
Quarter: 2014Q3

REPORT INFORMATION
  Report Type: Spontaneous
  Country: US (occurrence: US)
  Receive Date: 20140819
  Receipt Date: 20140819
  Transmission Date: 20150326
  Serious: Yes (Other)
  Sender: FDA-Public Use
  Company Number: US-TEVA-503115USA

PATIENT
  Age: 21 Year
  Sex: Female

DRUGS (2)
  1. PLAN B ONE-STEP [Suspect]
     Active Substance: LEVONORGESTREL
     Indication: POST COITAL CONTRACEPTION
     Dates: start: 20130807, end: 20130807
  2. PLAN B ONE-STEP [Suspect]
     Active Substance: LEVONORGESTREL
     Dates: start: 20130814, end: 20130814

REACTIONS (4)
  - Abortion spontaneous [Unknown]
  - Fatigue [Unknown]
  - Menstruation irregular [Unknown]
  - Breast tenderness [Unknown]

NARRATIVE: CASE EVENT DATE: 20130922
